FAERS Safety Report 13763217 (Version 3)
Quarter: 2017Q4

REPORT INFORMATION
  Report Type: Spontaneous
  Country: JP (occurrence: JP)
  Receive Date: 20170718
  Receipt Date: 20171020
  Transmission Date: 20180320
  Serious: Yes (Other)
  Sender: FDA-Public Use
  Company Number: JP-ELI_LILLY_AND_COMPANY-JP201706012766

PATIENT
  Age: 68 Year
  Sex: Female

DRUGS (3)
  1. HUMALOG [Concomitant]
     Active Substance: INSULIN LISPRO
     Indication: DIABETES MELLITUS
     Dosage: UNK
     Route: 058
  2. TRESIBA [Concomitant]
     Active Substance: INSULIN DEGLUDEC
     Indication: DIABETES MELLITUS
     Dosage: UNK
     Route: 058
  3. TRULICITY [Suspect]
     Active Substance: DULAGLUTIDE
     Indication: DIABETES MELLITUS
     Dosage: UNK
     Route: 058
     Dates: start: 20170530, end: 20170627

REACTIONS (1)
  - Drug-induced liver injury [Recovering/Resolving]

NARRATIVE: CASE EVENT DATE: 20170623
